FAERS Safety Report 14215681 (Version 3)
Quarter: 2018Q2

REPORT INFORMATION
  Report Type: Report from Study
  Country: CO (occurrence: CO)
  Receive Date: 20171122
  Receipt Date: 20180601
  Transmission Date: 20180711
  Serious: Yes (Other)
  Sender: FDA-Public Use
  Company Number: CO-ASTELLAS-2017US047944

PATIENT
  Age: 45 Year
  Sex: Male
  Weight: 63 kg

DRUGS (6)
  1. TACROLIMUS. [Suspect]
     Active Substance: TACROLIMUS
     Indication: RENAL TRANSPLANT
     Dosage: 4 MG (1 CAPSULE OF 1MG AND 1 CAPSULE OF 3MG, ONCE DAILY
     Route: 048
     Dates: start: 20171011
  2. TACROLIMUS. [Suspect]
     Active Substance: TACROLIMUS
     Indication: RENAL TRANSPLANT
     Dosage: 4 MG (1 CAPSULE OF 1MG AND 1 CAPSULE OF 3MG, ONCE DAILY
     Route: 048
     Dates: start: 20171011
  3. PREDNISOLONE. [Concomitant]
     Active Substance: PREDNISOLONE
     Indication: TRANSPLANT
     Dosage: UNK UNK, UNKNOWN FREQ.
     Route: 048
     Dates: start: 20170204
  4. OMEPRAZOLE. [Concomitant]
     Active Substance: OMEPRAZOLE
     Indication: TRANSPLANT
     Dosage: UNK UNK, UNKNOWN FREQ.
     Route: 048
     Dates: start: 20170204
  5. MYCOPHENOLATE [Concomitant]
     Active Substance: MYCOPHENOLIC ACID
     Indication: TRANSPLANT
     Dosage: UNK UNK, UNKNOWN FREQ.
     Route: 048
     Dates: start: 20170204
  6. ATORVASTATIN [Concomitant]
     Active Substance: ATORVASTATIN
     Indication: TRANSPLANT
     Dosage: UNK UNK, UNKNOWN FREQ.
     Route: 048
     Dates: start: 20170204

REACTIONS (2)
  - Catheter removal [Unknown]
  - Procedural pain [Unknown]

NARRATIVE: CASE EVENT DATE: 20171019
